FAERS Safety Report 19668073 (Version 1)
Quarter: 2021Q3

REPORT INFORMATION
  Report Type: Spontaneous
  Country: US (occurrence: US)
  Receive Date: 20210806
  Receipt Date: 20210806
  Transmission Date: 20211014
  Serious: Yes (Other)
  Sender: FDA-Public Use
  Company Number: US-JNJFOC-20210764052

PATIENT
  Age: 7 Decade
  Sex: Female

DRUGS (1)
  1. NEUTROGENA ULTRA SHEER BODY MIST SUNSCREEN BROAD SPECTRUM 70 (AVO\HOM\OCTI\OCTO) [Suspect]
     Active Substance: AVOBENZONE\HOMOSALATE\OCTISALATE\OCTOCRYLENE
     Indication: PROPHYLAXIS AGAINST SOLAR RADIATION
     Dosage: DO ONE OR TWO PASSES UP AND DOWN ON THE BODY AND THE FACE.  USED IT WHENEVER IN THE SUN OR RIDING MO
     Route: 061
     Dates: start: 20200601

REACTIONS (1)
  - Neoplasm malignant [Unknown]
